FAERS Safety Report 4755745-0 (Version None)
Quarter: 2005Q3

REPORT INFORMATION
  Report Type: 
  Country: None (occurrence: None)
  Receive Date: 20050830
  Receipt Date: 20050719
  Transmission Date: 20060218
  Serious: No
  Sender: FDA-Public Use
  Company Number: US-BRISTOL-MYERS SQUIBB COMPANY-13043179

PATIENT
  Age: 62 Year
  Sex: Female
  Weight: 50 kg

DRUGS (6)
  1. ABILIFY [Suspect]
     Indication: BIPOLAR DISORDER
     Route: 048
  2. ZOLOFT [Concomitant]
  3. LITHOBID [Concomitant]
  4. LESCOL [Concomitant]
  5. MULTI-VITAMIN [Concomitant]
  6. CALCIUM GLUCONATE [Concomitant]

REACTIONS (1)
  - DROOLING [None]
